FAERS Safety Report 24167743 (Version 2)
Quarter: 2025Q1

REPORT INFORMATION
  Report Type: Spontaneous
  Country: US (occurrence: US)
  Receive Date: 20240802
  Receipt Date: 20250303
  Transmission Date: 20250409
  Serious: Yes (Hospitalization)
  Sender: BIOGEN
  Company Number: US-BIOGEN-2024BI01275861

PATIENT
  Sex: Female
  Weight: 52.16 kg

DRUGS (2)
  1. SKYCLARYS [Suspect]
     Active Substance: OMAVELOXOLONE
     Indication: Friedreich^s ataxia
     Route: 050
     Dates: start: 20230718
  2. SKYCLARYS [Suspect]
     Active Substance: OMAVELOXOLONE
     Route: 050

REACTIONS (1)
  - Atrial fibrillation [Unknown]
